FAERS Safety Report 4901982-1 (Version None)
Quarter: 2006Q1

REPORT INFORMATION
  Report Type: 
  Country: None (occurrence: None)
  Receive Date: 20060206
  Receipt Date: 20060125
  Transmission Date: 20060701
  Serious: Yes (Hospitalization)
  Sender: FDA-Public Use
  Company Number: PHBS2006JP01526

PATIENT
  Age: 9 Year
  Sex: Female

DRUGS (2)
  1. SUMATRIPTAN SUCCINATE [Concomitant]
  2. ERGOTAMINE TARTRATE [Suspect]
     Indication: HEADACHE
     Route: 065

REACTIONS (6)
  - CONFUSIONAL STATE [None]
  - CONVULSION [None]
  - DELIRIUM [None]
  - HAEMORRHAGIC CEREBRAL INFARCTION [None]
  - MYCOPLASMA SEROLOGY POSITIVE [None]
  - PNEUMONIA MYCOPLASMAL [None]
